FAERS Safety Report 21615122 (Version 9)
Quarter: 2023Q4

REPORT INFORMATION
  Report Type: Report from Study
  Country: GB (occurrence: GB)
  Receive Date: 20221118
  Receipt Date: 20231005
  Transmission Date: 20240110
  Serious: Yes (Hospitalization, Other)
  Sender: FDA-Public Use
  Company Number: GB-ROCHE-3081254

PATIENT
  Age: 68 Year
  Sex: Male
  Weight: 80.95 kg

DRUGS (34)
  1. BEVACIZUMAB [Suspect]
     Active Substance: BEVACIZUMAB
     Indication: Hepatocellular carcinoma
     Dosage: 1200 MG, EVERY 3 WEEKS
     Route: 065
     Dates: start: 20220302
  2. ATEZOLIZUMAB [Suspect]
     Active Substance: ATEZOLIZUMAB
     Indication: Hepatocellular carcinoma
     Dosage: 1200 MG, EVERY 3 WEEKS
     Route: 042
     Dates: start: 20220302
  3. CARVEDILOL [Concomitant]
     Active Substance: CARVEDILOL
     Dosage: UNK, 1X/DAY
     Route: 065
     Dates: start: 20220615
  4. COCODAMOL [Concomitant]
     Active Substance: ACETAMINOPHEN\CODEINE PHOSPHATE
     Dosage: UNK UNK, AS NEEDED
     Route: 065
  5. FENTANYL [Concomitant]
     Active Substance: FENTANYL
     Dosage: 50 MG
     Dates: start: 20220708, end: 20220708
  6. FINASTERIDE [Concomitant]
     Active Substance: FINASTERIDE
     Dosage: UNK UNK, 1X/DAY
     Route: 065
  7. GLICLAZIDE [Concomitant]
     Active Substance: GLICLAZIDE
     Dosage: UNK, 1X/DAY
     Route: 065
     Dates: start: 20220703
  8. GLICLAZIDE [Concomitant]
     Active Substance: GLICLAZIDE
     Dosage: UNK
     Dates: start: 20230822
  9. HYDROCORTISONE [Concomitant]
     Active Substance: HYDROCORTISONE
     Dosage: UNK, 2X/DAY
     Route: 065
     Dates: start: 20220615
  10. HYDROCORTISONE [Concomitant]
     Active Substance: HYDROCORTISONE
     Dosage: UNK, 1X/DAY
     Dates: start: 20221104
  11. LACTULOSE [Concomitant]
     Active Substance: LACTULOSE
     Dosage: 15 ML, AS NEEDED
     Route: 065
     Dates: start: 20220703
  12. LANSOPRAZOLE [Concomitant]
     Active Substance: LANSOPRAZOLE
     Dosage: 30 MG
     Route: 065
     Dates: start: 20220708
  13. POLYETHYLENE GLYCOLS [Concomitant]
     Active Substance: POLYETHYLENE GLYCOLS
     Indication: Constipation
     Dosage: UNK, 1X/DAY
     Route: 065
     Dates: start: 20220825
  14. MIDAZOLAM [Concomitant]
     Active Substance: MIDAZOLAM
     Dosage: 3 MG
     Dates: start: 20220708, end: 20220708
  15. ACETAMINOPHEN [Concomitant]
     Active Substance: ACETAMINOPHEN
     Dosage: UNK UNK, AS NEEDED
     Route: 065
  16. PREGABALIN [Concomitant]
     Active Substance: PREGABALIN
     Dosage: 100 MG, 1X/DAY
     Route: 065
     Dates: start: 20220701, end: 20220819
  17. PREGABALIN [Concomitant]
     Active Substance: PREGABALIN
     Dosage: 50 MG, 3X/DAY
     Dates: start: 20220706, end: 20220920
  18. PROPRANOLOL [Concomitant]
     Active Substance: PROPRANOLOL HYDROCHLORIDE
     Dosage: UNK UNK, 2X/DAY
     Route: 065
  19. ALBUTEROL [Concomitant]
     Active Substance: ALBUTEROL
     Indication: Product used for unknown indication
     Dosage: 200 UG, AS NEEDED
     Route: 065
     Dates: start: 20220711
  20. SIMVASTATIN [Concomitant]
     Active Substance: SIMVASTATIN
     Dosage: UNK UNK, 1X/DAY
     Route: 065
  21. SPIRONOLACTONE [Concomitant]
     Active Substance: SPIRONOLACTONE
     Indication: Product used for unknown indication
     Dosage: UNK, 1X/DAY
     Route: 065
     Dates: start: 20220611
  22. TERLIPRESSIN [Concomitant]
     Active Substance: TERLIPRESSIN
     Dosage: UNK
     Route: 065
     Dates: start: 20220627
  23. THROMBIN [Concomitant]
     Active Substance: THROMBIN
     Dosage: HUMAN
     Route: 065
     Dates: start: 20220626, end: 20220626
  24. RENAPRO [Concomitant]
  25. CALCIUM CARBONATE\CHOLECALCIFEROL [Concomitant]
     Active Substance: CALCIUM CARBONATE\CHOLECALCIFEROL
     Dosage: UNK, 1X/DAY
     Dates: start: 20220707
  26. ANUSOL [BISMUTH OXIDE;BISMUTH SUBGALLATE;ZINC OXIDE] [Concomitant]
     Dosage: UNK, 2X/DAY
     Dates: start: 20220707
  27. SANDOCAL [Concomitant]
     Dosage: UNK, 2X/DAY
     Dates: start: 20220707, end: 20220710
  28. MAGNESIUM CITRATE [Concomitant]
     Active Substance: MAGNESIUM CITRATE
     Dosage: UNK, 2X/DAY
     Dates: start: 20220707
  29. WHEY [Concomitant]
     Active Substance: WHEY
     Dosage: UNK, 3X/DAY
     Dates: start: 20220707
  30. AMOXICILLIN [Concomitant]
     Active Substance: AMOXICILLIN
     Dosage: UNK, 3X/DAY
     Dates: start: 20230130, end: 20230206
  31. TRIMETHOPRIM [Concomitant]
     Active Substance: TRIMETHOPRIM
     Dosage: UNK, 2X/DAY
     Dates: start: 20230501, end: 20230504
  32. MORPHINE SULFATE [Concomitant]
     Active Substance: MORPHINE SULFATE
     Dosage: UNK
     Dates: start: 20230511, end: 20230822
  33. FERROUS SULFATE [Concomitant]
     Active Substance: FERROUS SULFATE
     Dosage: UNK
     Dates: start: 20230426
  34. MORPHINE SULFATE [Concomitant]
     Active Substance: MORPHINE SULFATE
     Dosage: UNK

REACTIONS (20)
  - Haematemesis [Recovered/Resolved]
  - Rectal haemorrhage [Recovered/Resolved]
  - Melaena [Recovered/Resolved]
  - Fatigue [Not Recovered/Not Resolved]
  - Diarrhoea [Recovered/Resolved]
  - Varices oesophageal [Not Recovered/Not Resolved]
  - Decreased appetite [Recovered/Resolved]
  - Contusion [Recovered/Resolved]
  - Muscle spasms [Recovered/Resolved with Sequelae]
  - Cortisol decreased [Recovered/Resolved]
  - Urinary retention [Recovered/Resolved]
  - Gastric varices [Not Recovered/Not Resolved]
  - Insomnia [Not Recovered/Not Resolved]
  - Sciatica [Not Recovered/Not Resolved]
  - Haemorrhoids [Not Recovered/Not Resolved]
  - Hyponatraemia [Recovered/Resolved]
  - Blood calcium decreased [Recovered/Resolved]
  - Blood magnesium decreased [Recovered/Resolved]
  - Anaemia [Recovered/Resolved]
  - Constipation [Not Recovered/Not Resolved]

NARRATIVE: CASE EVENT DATE: 20220305
